FAERS Safety Report 6495335-5 (Version None)
Quarter: 2009Q4

REPORT INFORMATION
  Report Type: 
  Country: None (occurrence: None)
  Receive Date: 20091214
  Receipt Date: 20090701
  Transmission Date: 20100525
  Serious: No
  Sender: FDA-Public Use
  Company Number: US-BRISTOL-MYERS SQUIBB COMPANY-14648950

PATIENT
  Age: 23 Year
  Sex: Male
  Weight: 82 kg

DRUGS (9)
  1. ABILIFY [Suspect]
     Indication: SCHIZOPHRENIA
     Dosage: DURATION:2 1/2-3 WEEKS; DOSE INCREASED TO 30MG.
  2. ABILIFY [Suspect]
     Indication: BIPOLAR DISORDER
     Dosage: DURATION:2 1/2-3 WEEKS; DOSE INCREASED TO 30MG.
  3. ABILIFY [Suspect]
     Indication: DEPRESSION
     Dosage: DURATION:2 1/2-3 WEEKS; DOSE INCREASED TO 30MG.
  4. ZOLOFT [Concomitant]
  5. KLONOPIN [Concomitant]
  6. COGENTIN [Concomitant]
  7. RISPERDAL [Concomitant]
  8. TRAZODONE HCL [Concomitant]
  9. COMMIT [Concomitant]

REACTIONS (2)
  - BLOOD PRESSURE INCREASED [None]
  - DIZZINESS [None]
